FAERS Safety Report 7289524-X (Version None)
Quarter: 2011Q1

REPORT INFORMATION
  Report Type: 
  Country: None (occurrence: None)
  Receive Date: 20110211
  Receipt Date: 20110209
  Transmission Date: 20110831
  Serious: Yes (Hospitalization, Other)
  Sender: FDA-Public Use
  Company Number: US-AMGEN-USASP2011007806

PATIENT
  Sex: Male

DRUGS (3)
  1. DILANTIN [Concomitant]
     Indication: CONVULSION
  2. DEPAKOTE [Concomitant]
     Indication: PRODUCT USED FOR UNKNOWN INDICATION
  3. NPLATE [Suspect]
     Indication: IDIOPATHIC THROMBOCYTOPENIC PURPURA
     Dates: start: 20101001

REACTIONS (4)
  - CONVULSION [None]
  - BACK INJURY [None]
  - WEIGHT DECREASED [None]
  - DRUG LEVEL BELOW THERAPEUTIC [None]
